FAERS Safety Report 14355728 (Version 1)
Quarter: 2018Q1

REPORT INFORMATION
  Report Type: Spontaneous
  Country: US (occurrence: US)
  Receive Date: 20180105
  Receipt Date: 20180105
  Transmission Date: 20180509
  Serious: Yes (Other)
  Sender: FDA-Public Use
  Company Number: US-PFIZER INC-2018004783

PATIENT
  Age: 70 Year
  Sex: Female
  Weight: 69.4 kg

DRUGS (1)
  1. FENTANYL CITRATE. [Suspect]
     Active Substance: FENTANYL CITRATE
     Indication: PAIN
     Dosage: 25 UG, UNK (CHANGE EVERY 3 DAYS)
     Route: 061

REACTIONS (4)
  - Drug ineffective [Unknown]
  - Dependence [Unknown]
  - Malaise [Unknown]
  - Vomiting [Unknown]
